FAERS Safety Report 15156993 (Version 1)
Quarter: 2018Q3

REPORT INFORMATION
  Report Type: Spontaneous
  Country: US (occurrence: US)
  Receive Date: 20180718
  Receipt Date: 20180718
  Transmission Date: 20181010
  Serious: No
  Sender: FDA-Public Use
  Company Number: US-CIPLA LTD.-2018US15435

PATIENT

DRUGS (4)
  1. WARFARIN [Suspect]
     Active Substance: WARFARIN
     Dosage: UNK, DOSE INCREASED
     Route: 048
  2. PROTONIX                           /00661201/ [Concomitant]
     Active Substance: OMEPRAZOLE
     Indication: GASTROOESOPHAGEAL REFLUX DISEASE
     Dosage: 40 MG, ONCE PER DAY
     Route: 065
  3. WARFARIN [Suspect]
     Active Substance: WARFARIN
     Indication: ANTICOAGULANT THERAPY
     Dosage: 7.5 MG, THREE DAYS PER WEEK (MONDAY, WEDNESDAY AND SATURDAY AND FRIDAY)
     Route: 048
  4. WARFARIN [Suspect]
     Active Substance: WARFARIN
     Dosage: 5 MG, TUESDAY, THURSDAY, AND SUNDAY
     Route: 048

REACTIONS (7)
  - Hypoaesthesia [Unknown]
  - Drug ineffective [Unknown]
  - Constipation [Not Recovered/Not Resolved]
  - Contusion [Unknown]
  - Epistaxis [Unknown]
  - Diarrhoea [Not Recovered/Not Resolved]
  - International normalised ratio abnormal [Not Recovered/Not Resolved]
